FAERS Safety Report 21821987 (Version 1)
Quarter: 2023Q1

REPORT INFORMATION
  Report Type: Spontaneous
  Country: US (occurrence: US)
  Receive Date: 20230105
  Receipt Date: 20230105
  Transmission Date: 20230417
  Serious: No
  Sender: FDA-Public Use
  Company Number: US-SANOFI-01427667

PATIENT
  Sex: Female

DRUGS (2)
  1. KEVZARA [Suspect]
     Active Substance: SARILUMAB
     Indication: Rheumatoid arthritis
     Dosage: 150 MG QOW
     Dates: end: 20221104
  2. KEVZARA [Suspect]
     Active Substance: SARILUMAB
     Indication: Rheumatoid factor positive

REACTIONS (1)
  - Drug ineffective [Unknown]
